FAERS Safety Report 14039624 (Version 2)
Quarter: 2017Q4

REPORT INFORMATION
  Report Type: Spontaneous
  Country: US (occurrence: US)
  Receive Date: 20171004
  Receipt Date: 20171218
  Transmission Date: 20180321
  Serious: Yes (Other)
  Sender: FDA-Public Use
  Company Number: US-BAYER-2017-187269

PATIENT
  Age: 31 Year
  Sex: Female
  Weight: 75.28 kg

DRUGS (2)
  1. MIRENA [Suspect]
     Active Substance: LEVONORGESTREL
     Indication: CONTRACEPTION
  2. MIRENA [Suspect]
     Active Substance: LEVONORGESTREL
     Indication: CONTRACEPTION
     Dosage: 20 MCG/24HR, CONT
     Route: 015
     Dates: start: 20170712, end: 20170830

REACTIONS (6)
  - Device dislocation [None]
  - Ovarian cyst [None]
  - Dysmenorrhoea [None]
  - Pain [None]
  - Medical device discomfort [None]
  - Abdominal pain lower [None]

NARRATIVE: CASE EVENT DATE: 2017
